FAERS Safety Report 20176515 (Version 2)
Quarter: 2021Q4

REPORT INFORMATION
  Report Type: Spontaneous
  Country: US (occurrence: US)
  Receive Date: 20211213
  Receipt Date: 20211227
  Transmission Date: 20220304
  Serious: No
  Sender: FDA-Public Use
  Company Number: US-009507513-2111USA010286

PATIENT
  Sex: Female

DRUGS (2)
  1. PROVENTIL [Suspect]
     Active Substance: ALBUTEROL
     Indication: Emphysema
     Dosage: 2 PUFFS, Q4H
     Dates: start: 2021
  2. PROVENTIL [Suspect]
     Active Substance: ALBUTEROL
     Indication: Emphysema
     Dosage: 2 PUFFS, Q4H
     Dates: start: 2021

REACTIONS (5)
  - Oxygen therapy [Unknown]
  - Overdose [Unknown]
  - Device malfunction [Unknown]
  - Poor quality device used [Unknown]
  - Product use in unapproved indication [Unknown]

NARRATIVE: CASE EVENT DATE: 20210101
